FAERS Safety Report 4269006-X (Version None)
Quarter: 2004Q1

REPORT INFORMATION
  Report Type: 
  Country: None (occurrence: None)
  Receive Date: 20040112
  Receipt Date: 20040112
  Transmission Date: 20041129
  Serious: Yes (Other)
  Sender: FDA-Public Use
  Company Number: None

PATIENT
  Age: 71 Year
  Sex: Female
  Weight: 70.8 kg

DRUGS (2)
  1. PROLEUKIN [Suspect]
     Indication: MALIGNANT MELANOMA
     Dosage: 50, 976 MIU IVPB
     Route: 040
     Dates: start: 20031201, end: 20031204
  2. PROLEUKIN [Suspect]
     Indication: MALIGNANT MELANOMA
     Dosage: 48, 960 MIU IVPB
     Route: 040
     Dates: start: 20031222, end: 20031226

REACTIONS (2)
  - CAPILLARY LEAK SYNDROME [None]
  - HYPOTENSION [None]
